FAERS Safety Report 24675824 (Version 2)
Quarter: 2024Q4

REPORT INFORMATION
  Report Type: Spontaneous
  Country: US (occurrence: US)
  Receive Date: 20241128
  Receipt Date: 20241226
  Transmission Date: 20250114
  Serious: Yes (Other)
  Sender: TERSERA THERAPEUTICS
  Company Number: US-TERSERA THERAPEUTICS LLC-2024TRS005823

PATIENT

DRUGS (2)
  1. PRIALT [Suspect]
     Active Substance: ZICONOTIDE ACETATE
     Indication: Pain
     Dosage: 9.991 MCG (0.416 MCG/ HR) (CONCENTRATION 10.0 MCG/ML)
     Route: 037
  2. DILAUDID [Suspect]
     Active Substance: HYDROMORPHONE HYDROCHLORIDE
     Indication: Pain
     Dosage: 7.493 MG, QD (0.3122 MG/ HR) (CONCENTRATION  7.5 MG/ML)
     Route: 037

REACTIONS (5)
  - Dementia [Unknown]
  - Implant site warmth [Unknown]
  - Catheter site discharge [Unknown]
  - Product use issue [Unknown]
  - Off label use [Unknown]

NARRATIVE: CASE EVENT DATE: 20241118
